FAERS Safety Report 24311715 (Version 1)
Quarter: 2024Q3

REPORT INFORMATION
  Report Type: Report from Study
  Country: ES (occurrence: ES)
  Receive Date: 20240912
  Receipt Date: 20240912
  Transmission Date: 20241016
  Serious: Yes (Other)
  Sender: ROCHE
  Company Number: ES-ROCHE-10000073814

PATIENT

DRUGS (7)
  1. ATEZOLIZUMAB [Suspect]
     Active Substance: ATEZOLIZUMAB
     Indication: Neoplasm malignant
     Route: 065
  2. DURVALUMAB [Suspect]
     Active Substance: DURVALUMAB
     Indication: Neoplasm malignant
     Route: 065
  3. IPILIMUMAB [Suspect]
     Active Substance: IPILIMUMAB
     Indication: Neoplasm malignant
     Route: 065
  4. NIVOLUMAB [Suspect]
     Active Substance: NIVOLUMAB
     Indication: Neoplasm malignant
     Route: 065
  5. PEMBROLIZUMAB [Suspect]
     Active Substance: PEMBROLIZUMAB
     Indication: Neoplasm malignant
     Route: 065
  6. CEMIPLIMAB [Suspect]
     Active Substance: CEMIPLIMAB
     Indication: Neoplasm malignant
     Route: 065
  7. AVELUMAB [Suspect]
     Active Substance: AVELUMAB
     Indication: Neoplasm malignant
     Route: 065

REACTIONS (36)
  - Pemphigoid [Unknown]
  - Psoriasis [Unknown]
  - Eczema [Unknown]
  - Seborrhoeic dermatitis [Unknown]
  - Rash maculo-papular [Unknown]
  - Lichenoid keratosis [Unknown]
  - Rosacea [Unknown]
  - Folliculitis [Unknown]
  - Hidradenitis [Unknown]
  - Prurigo [Unknown]
  - Urticaria [Unknown]
  - Drug eruption [Unknown]
  - Mucosal inflammation [Unknown]
  - Pseudolymphoma [Unknown]
  - Lichen sclerosus [Unknown]
  - Perioral dermatitis [Unknown]
  - Sarcoidosis [Unknown]
  - Acute febrile neutrophilic dermatosis [Unknown]
  - Actinic keratosis [Unknown]
  - Basal cell carcinoma [Unknown]
  - Xerosis [Unknown]
  - Hair disorder [Unknown]
  - Transient acantholytic dermatosis [Unknown]
  - Vitiligo [Unknown]
  - Melanocytic naevus [Unknown]
  - Rash [Unknown]
  - Pruritus [Unknown]
  - Endocrine disorder [Unknown]
  - Rheumatic disorder [Unknown]
  - Gastrointestinal disorder [Unknown]
  - Lung disorder [Unknown]
  - Cardiac disorder [Unknown]
  - Renal disorder [Unknown]
  - Nervous system disorder [Unknown]
  - Blood disorder [Unknown]
  - Pyrexia [Unknown]
